FAERS Safety Report 5320803-9 (Version None)
Quarter: 2007Q2

REPORT INFORMATION
  Report Type: 
  Country: None (occurrence: None)
  Receive Date: 20070509
  Receipt Date: 20070430
  Transmission Date: 20071010
  Serious: Yes (Hospitalization)
  Sender: FDA-Public Use
  Company Number: BR-ABBOTT-07P-020-0367003-00

PATIENT
  Sex: Female
  Weight: 65 kg

DRUGS (3)
  1. HUMIRA [Suspect]
     Indication: RHEUMATOID ARTHRITIS
     Route: 058
     Dates: start: 20061215, end: 20070202
  2. METHOTREXATE [Concomitant]
     Indication: RHEUMATOID ARTHRITIS
     Route: 048
  3. LEVOTHYROXINE SODIUM [Concomitant]
     Indication: HYPOTHYROIDISM
     Route: 048
     Dates: start: 19970101

REACTIONS (8)
  - BACTERIAL INFECTION [None]
  - DIARRHOEA [None]
  - DYSGEUSIA [None]
  - GASTROINTESTINAL INFECTION [None]
  - LIVER DISORDER [None]
  - MALAISE [None]
  - PYREXIA [None]
  - VOMITING [None]
